FAERS Safety Report 10236373 (Version 2)
Quarter: 2014Q2

REPORT INFORMATION
  Report Type: Other
  Country: None (occurrence: US)
  Receive Date: 20140613
  Receipt Date: 20140613
  Transmission Date: 20141212
  Serious: Yes (Hospitalization)
  Sender: FDA-Public Use
  Company Number: US-GSKPPD-2014GSK000097

PATIENT
  Age: 61 Year
  Sex: Female
  Weight: 122.58 kg

DRUGS (6)
  1. AVANDIA [Suspect]
     Indication: DIABETES MELLITUS
     Dosage: AVANDIA WAS NOT LISTED AMONG THE PATIENT^S  DISCHARGE RECORDS
     Route: 048
  2. NITROGLYCERIN PASTE [Concomitant]
  3. FUROSEMIDE [Concomitant]
  4. CARVEDILOL [Concomitant]
     Route: 048
  5. INDOMETHACIN [Concomitant]
     Route: 048
  6. LISINOPRIL [Concomitant]
     Route: 048

REACTIONS (2)
  - Cardiac disorder [None]
  - Aortic valve stenosis [Recovered/Resolved]
